FAERS Safety Report 18611269 (Version 3)
Quarter: 2021Q1

REPORT INFORMATION
  Report Type: Report from Study
  Country: KR (occurrence: KR)
  Receive Date: 20201214
  Receipt Date: 20210120
  Transmission Date: 20210419
  Serious: Yes (Hospitalization)
  Sender: FDA-Public Use
  Company Number: KR-B.I. PHARMACEUTICALS,INC./RIDGEFIELD-2020-BI-066420

PATIENT
  Age: 81 Year
  Sex: Female
  Weight: 58.6 kg

DRUGS (2)
  1. GILOTRIF [Suspect]
     Active Substance: AFATINIB
     Indication: LUNG NEOPLASM MALIGNANT
     Route: 048
     Dates: start: 20160126, end: 201704
  2. GILOTRIF [Suspect]
     Active Substance: AFATINIB
     Route: 048

REACTIONS (5)
  - Asthenia [Recovered/Resolved]
  - Decreased appetite [Not Recovered/Not Resolved]
  - Dysgeusia [Unknown]
  - Paronychia [Unknown]
  - Dermatitis [Recovered/Resolved]

NARRATIVE: CASE EVENT DATE: 20160126
